FAERS Safety Report 7075696-9 (Version None)
Quarter: 2010Q4

REPORT INFORMATION
  Report Type: 
  Country: None (occurrence: None)
  Receive Date: 20101031
  Receipt Date: 20101025
  Transmission Date: 20110411
  Serious: Yes (Life-Threatening, Hospitalization)
  Sender: FDA-Public Use
  Company Number: PHHY2010US72057

PATIENT
  Sex: Female

DRUGS (1)
  1. GLEEVEC [Suspect]
     Dosage: 600 MG, QD
     Route: 048
     Dates: start: 20100401, end: 20100801

REACTIONS (8)
  - BLOOD COUNT ABNORMAL [None]
  - CONTUSION [None]
  - GAIT DISTURBANCE [None]
  - PALLOR [None]
  - PLATELET COUNT DECREASED [None]
  - RED BLOOD CELL COUNT DECREASED [None]
  - SPLENIC RUPTURE [None]
  - WHITE BLOOD CELL COUNT DECREASED [None]
